FAERS Safety Report 15788678 (Version 2)
Quarter: 2019Q1

REPORT INFORMATION
  Report Type: Spontaneous
  Country: US (occurrence: US)
  Receive Date: 20190104
  Receipt Date: 20190105
  Transmission Date: 20190417
  Serious: No
  Sender: FDA-Public Use
  Company Number: US-HETERO CORPORATE-HET2018US01581

PATIENT
  Age: 76 Year
  Sex: Male
  Weight: 81.63 kg

DRUGS (1)
  1. SILDENAFIL. [Suspect]
     Active Substance: SILDENAFIL
     Indication: DISTURBANCE IN SEXUAL AROUSAL
     Dosage: 100 MG, COUPLE OF TIMES/ 02 DAYS APART
     Route: 065
     Dates: start: 20181201, end: 20181216

REACTIONS (1)
  - Drug ineffective [Unknown]

NARRATIVE: CASE EVENT DATE: 20181207
